FAERS Safety Report 5133613-2 (Version None)
Quarter: 2006Q4

REPORT INFORMATION
  Report Type: 
  Country: None (occurrence: None)
  Receive Date: 20061024
  Receipt Date: 20060413
  Transmission Date: 20070319
  Serious: No
  Sender: FDA-Public Use
  Company Number: US-AMGEN-US176165

PATIENT
  Sex: Female

DRUGS (8)
  1. SENSIPAR [Suspect]
     Indication: DRUG USE FOR UNKNOWN INDICATION
     Route: 048
  2. ZYRTEC [Concomitant]
     Route: 065
  3. RENAGEL [Concomitant]
     Route: 065
  4. LEVOTHROID [Concomitant]
     Route: 065
  5. PRAVACHOL [Concomitant]
     Route: 065
  6. CYTOMEL [Concomitant]
     Route: 065
  7. REGLAN [Concomitant]
     Route: 065
  8. FORADIL [Concomitant]
     Route: 065

REACTIONS (1)
  - STOMACH DISCOMFORT [None]
